FAERS Safety Report 25591123 (Version 1)
Quarter: 2025Q3

REPORT INFORMATION
  Report Type: Spontaneous
  Country: US (occurrence: US)
  Receive Date: 20250722
  Receipt Date: 20250722
  Transmission Date: 20251020
  Serious: No
  Sender: DR REDDYS
  Company Number: None

PATIENT
  Age: 63 Year
  Sex: Female

DRUGS (2)
  1. GEMCITABINE [Suspect]
     Active Substance: GEMCITABINE
     Indication: Pancreaticobiliary carcinoma
  2. CISPLATIN [Concomitant]
     Active Substance: CISPLATIN
     Indication: Pancreaticobiliary carcinoma

REACTIONS (1)
  - Pseudocellulitis [Recovered/Resolved]
